FAERS Safety Report 4781292-6 (Version None)
Quarter: 2005Q3

REPORT INFORMATION
  Report Type: 
  Country: None (occurrence: None)
  Receive Date: 20050928
  Receipt Date: 20040406
  Transmission Date: 20060218
  Serious: Yes (Hospitalization)
  Sender: FDA-Public Use
  Company Number: JP-ABBOTT-04P-087-0257013-00

PATIENT
  Sex: Male
  Weight: 53.5 kg

DRUGS (26)
  1. KALETRA [Suspect]
     Indication: HIV INFECTION
     Route: 048
     Dates: start: 20030108
  2. LAMIVUDINE [Suspect]
     Indication: HIV INFECTION
     Route: 048
     Dates: start: 20030108, end: 20050302
  3. STAVUDINE [Suspect]
     Indication: HIV INFECTION
     Route: 048
     Dates: start: 20030108, end: 20040831
  4. INDOMETHACIN [Suspect]
     Indication: FOLLICULITIS
     Route: 048
     Dates: start: 20021225, end: 20030122
  5. INDOMETHACIN [Suspect]
     Route: 061
     Dates: start: 20021225, end: 20030121
  6. BACTRIM [Concomitant]
     Indication: INFECTION PROPHYLAXIS
     Route: 048
     Dates: start: 20021106, end: 20021116
  7. BACTRIM [Concomitant]
     Route: 048
     Dates: start: 20030628, end: 20040630
  8. FLUCONAZOLE [Concomitant]
     Indication: CANDIDIASIS
     Route: 048
     Dates: start: 20021111, end: 20021115
  9. DOXORUBICIN HYDROCHLORIDE [Concomitant]
     Indication: KAPOSI'S SARCOMA
     Route: 050
     Dates: start: 20021119, end: 20030312
  10. ONDANSETRON [Concomitant]
     Indication: PROPHYLAXIS
     Route: 042
     Dates: start: 20021119, end: 20030312
  11. PENTAMIDINE ISETHIONATE [Concomitant]
     Indication: INFECTION PROPHYLAXIS
     Route: 042
     Dates: start: 20021128, end: 20021128
  12. PENTAMIDINE ISETHIONATE [Concomitant]
     Route: 055
     Dates: start: 20021225, end: 20030514
  13. CLOBETASOL PROPIONATE [Concomitant]
     Indication: FOLLICULITIS
     Route: 061
     Dates: start: 20030122, end: 20030218
  14. AZITHROMYCIN [Concomitant]
     Indication: ANTIBIOTIC PROPHYLAXIS
     Route: 048
     Dates: start: 20030129, end: 20040114
  15. DIFLUCORTOLONE VALERATE [Concomitant]
     Indication: FOLLICULITIS
     Route: 061
     Dates: start: 20030219, end: 20030401
  16. CETIRIZINE HCL [Concomitant]
     Indication: SEASONAL ALLERGY
     Route: 048
     Dates: start: 20040302
  17. CETIRIZINE HCL [Concomitant]
     Route: 048
     Dates: start: 20040401, end: 20040530
  18. CROMOLYN SODIUM [Concomitant]
     Indication: SEASONAL ALLERGY
     Dates: start: 20040302
  19. CROMOLYN SODIUM [Concomitant]
     Dates: start: 20040401, end: 20040530
  20. CROMOLYN SODIUM [Concomitant]
     Dates: start: 20050302
  21. RETINOL [Concomitant]
     Indication: FOLLICULITIS
     Route: 061
     Dates: start: 20030402, end: 20030531
  22. DIFLUPREDNATE [Concomitant]
     Indication: FOLLICULITIS
     Route: 061
     Dates: start: 20030402, end: 20030531
  23. LOPERAMIDE [Concomitant]
     Indication: DIARRHOEA
     Route: 048
     Dates: start: 20040401
  24. ABACAVIR [Concomitant]
     Indication: HIV INFECTION
     Route: 048
     Dates: start: 20040901, end: 20050104
  25. ABACAVIR [Concomitant]
     Route: 048
     Dates: start: 20050105, end: 20050302
  26. LAMIVUDINE/ABACAVIR [Concomitant]
     Indication: HIV INFECTION
     Route: 048
     Dates: start: 20050303

REACTIONS (11)
  - BLOOD LACTATE DEHYDROGENASE INCREASED [None]
  - BLOOD URIC ACID INCREASED [None]
  - BRADYCARDIA [None]
  - CELLULITIS [None]
  - DIARRHOEA [None]
  - FACIAL WASTING [None]
  - MELAENA [None]
  - NAUSEA [None]
  - OESOPHAGEAL CANDIDIASIS [None]
  - ORAL CANDIDIASIS [None]
  - PAIN IN JAW [None]
